FAERS Safety Report 4866126-3 (Version None)
Quarter: 2005Q4

REPORT INFORMATION
  Report Type: 
  Country: None (occurrence: None)
  Receive Date: 20051221
  Receipt Date: 20051215
  Transmission Date: 20060501
  Serious: Yes (Hospitalization)
  Sender: FDA-Public Use
  Company Number: 2005-11-0892

PATIENT
  Age: 46 Year
  Sex: Female
  Weight: 68 kg

DRUGS (7)
  1. PEG-INTRON [Suspect]
     Indication: HEPATITIS C
     Dosage: 100-80*MCG QW SUBCUTANEOUS
     Route: 058
     Dates: start: 20050614, end: 20050601
  2. PEG-INTRON [Suspect]
     Indication: HEPATITIS C
     Dosage: 100-80*MCG QW SUBCUTANEOUS
     Route: 058
     Dates: start: 20050614, end: 20051021
  3. PEG-INTRON [Suspect]
     Indication: HEPATITIS C
     Dosage: 100-80*MCG QW SUBCUTANEOUS
     Route: 058
     Dates: start: 20050621, end: 20051021
  4. REBETOL [Suspect]
     Indication: HEPATITIS C
     Dosage: 800 MG ORAL
     Route: 048
     Dates: start: 20050614, end: 20051021
  5. MEDICON TABLETS [Concomitant]
  6. LOXONIN TABLETS [Concomitant]
  7. IRSOGLADINE MALEATE TABLETS [Concomitant]

REACTIONS (10)
  - ABNORMAL BEHAVIOUR [None]
  - ANXIETY [None]
  - CONFUSIONAL STATE [None]
  - DELUSION [None]
  - DEPRESSION [None]
  - HYPERVENTILATION [None]
  - INSOMNIA [None]
  - PSYCHOTIC DISORDER [None]
  - RESTLESSNESS [None]
  - WHITE BLOOD CELL COUNT DECREASED [None]
